FAERS Safety Report 9231463 (Version 2)
Quarter: 2013Q2

REPORT INFORMATION
  Report Type: Report from Study
  Country: US (occurrence: US)
  Receive Date: 20130415
  Receipt Date: 20130620
  Transmission Date: 20140414
  Serious: Yes (Hospitalization)
  Sender: FDA-Public Use
  Company Number: PHEH2013US007432

PATIENT
  Age: 68 Year
  Sex: Male

DRUGS (4)
  1. GLEEVEC [Suspect]
     Indication: CHRONIC MYELOID LEUKAEMIA
     Dosage: 500 MG, DAILY
     Route: 048
     Dates: start: 20070918
  2. GLEEVEC [Suspect]
     Dosage: 500 MG, DAILY
     Route: 048
     Dates: start: 20030816
  3. HERPES VIRUS VACCINE [Concomitant]
     Dosage: 1 UKN, ONCE/SINGLE
     Route: 030
  4. COUMADINE [Concomitant]
     Indication: ATRIAL FIBRILLATION

REACTIONS (4)
  - Asthma [Unknown]
  - Lymphadenopathy [Unknown]
  - Anaphylactic shock [Recovered/Resolved]
  - Rash [Recovered/Resolved]
